FAERS Safety Report 6314883-1 (Version None)
Quarter: 2009Q3

REPORT INFORMATION
  Report Type: 
  Country: None (occurrence: None)
  Receive Date: 20090819
  Receipt Date: 20090813
  Transmission Date: 20100115
  Serious: Yes (Other)
  Sender: FDA-Public Use
  Company Number: DE-ASTRAZENECA-2009SE08208

PATIENT
  Sex: Male

DRUGS (11)
  1. SEROQUEL [Suspect]
     Route: 048
  2. SEROQUEL [Suspect]
     Route: 048
  3. SEROQUEL [Suspect]
     Route: 048
  4. ABILIFY [Concomitant]
  5. LITHIUM CARBONATE [Concomitant]
  6. CARBAMAZEPINE [Concomitant]
  7. MAGNESIUM [Concomitant]
     Dosage: 2 TABLET
  8. VESICARE [Concomitant]
  9. LAXATAN [Concomitant]
     Dosage: 1 DOSE
  10. ALNA OCAS [Concomitant]
  11. GRANUFINK [Concomitant]
     Dosage: 3 DOSE

REACTIONS (3)
  - ANXIETY [None]
  - BALANCE DISORDER [None]
  - PANIC ATTACK [None]
